FAERS Safety Report 25879118 (Version 1)
Quarter: 2025Q4

REPORT INFORMATION
  Report Type: Report from Study
  Country: US (occurrence: US)
  Receive Date: 20251003
  Receipt Date: 20251003
  Transmission Date: 20260118
  Serious: Yes (Other)
  Sender: MALLINCKRODT
  Company Number: US-MALLINCKRODT-MNK202505934

PATIENT
  Sex: Male

DRUGS (2)
  1. CORTICOTROPIN [Suspect]
     Active Substance: CORTICOTROPIN
     Indication: Sarcoidosis
     Dosage: UNKNOWN
  2. ACRIVASTINE [Concomitant]
     Active Substance: ACRIVASTINE
     Dosage: UNKNOWN

REACTIONS (11)
  - Rheumatoid arthritis [Unknown]
  - Sjogren^s syndrome [Unknown]
  - Renal disorder [Unknown]
  - Sarcoidosis [Unknown]
  - Condition aggravated [Unknown]
  - Contusion [Unknown]
  - Skin discolouration [Unknown]
  - Frustration tolerance decreased [Unknown]
  - Weight increased [Unknown]
  - Swelling [Unknown]
  - Fatigue [Unknown]
